FAERS Safety Report 12213954 (Version 1)
Quarter: 2016Q1

REPORT INFORMATION
  Report Type: Spontaneous
  Country: US (occurrence: None)
  Receive Date: 20160325
  Receipt Date: 20160325
  Transmission Date: 20160526
  Serious: Yes (Hospitalization)
  Sender: FDA-Public Use
  Company Number: None

PATIENT
  Age: 7 Year
  Sex: Male
  Weight: 31.9 kg

DRUGS (6)
  1. CYTARABINE. [Suspect]
     Active Substance: CYTARABINE
     Dates: end: 20160226
  2. METHOTREXATE [Suspect]
     Active Substance: METHOTREXATE
     Dates: end: 20160302
  3. VINCRISTINE SULFATE. [Suspect]
     Active Substance: VINCRISTINE SULFATE
     Dates: end: 20160226
  4. MERCAPTOPURINE. [Suspect]
     Active Substance: MERCAPTOPURINE
     Dates: end: 20160303
  5. PREDNISONE. [Suspect]
     Active Substance: PREDNISONE
     Dates: end: 20160301
  6. HYDROCORTISONE. [Suspect]
     Active Substance: HYDROCORTISONE
     Dates: end: 20160226

REACTIONS (13)
  - Neutropenia [None]
  - Otitis media [None]
  - Pancytopenia [None]
  - Pain [None]
  - Histiocytosis haematophagic [None]
  - Pyrexia [None]
  - Cytomegalovirus test positive [None]
  - Human rhinovirus test positive [None]
  - Blood lactate dehydrogenase increased [None]
  - Cough [None]
  - Sinusitis [None]
  - Serum ferritin increased [None]
  - Blood triglycerides increased [None]

NARRATIVE: CASE EVENT DATE: 20160316
